FAERS Safety Report 23741841 (Version 1)
Quarter: 2024Q2

REPORT INFORMATION
  Report Type: Spontaneous
  Country: US (occurrence: None)
  Receive Date: 20240412
  Receipt Date: 20240412
  Transmission Date: 20240716
  Serious: No
  Sender: FDA-Public Use
  Company Number: None

PATIENT
  Age: 71 Year
  Sex: Female
  Weight: 90.72 kg

DRUGS (1)
  1. ODOMZO [Suspect]
     Active Substance: SONIDEGIB
     Indication: Rheumatoid arthritis
     Dosage: OTHER QUANTITY : TAKE 1 CAPSULE ;?FREQUENCY : DAILY;?ITAKE 1 CAPSULE BY MOUTH DAILY ON EMPTY STOMACH
     Route: 048
     Dates: start: 202311

REACTIONS (3)
  - Urinary tract infection [None]
  - Ageusia [None]
  - Alopecia [None]
